FAERS Safety Report 20752562 (Version 1)
Quarter: 2022Q2

REPORT INFORMATION
  Report Type: Spontaneous
  Country: US (occurrence: None)
  Receive Date: 20220426
  Receipt Date: 20220426
  Transmission Date: 20220721
  Serious: No
  Sender: FDA-Public Use
  Company Number: US-ROCHE-2846203

PATIENT
  Sex: Male

DRUGS (1)
  1. ESBRIET [Suspect]
     Active Substance: PIRFENIDONE
     Indication: Idiopathic pulmonary fibrosis
     Dosage: 1 TABLET (267 MG) BY MOUTH 3 TIMES A DAY FOR 7 DAYS, THEN 2 TABLETS (534 MG) BY MOUTH 3 TIMES A DAY
     Route: 048

REACTIONS (4)
  - Adverse drug reaction [Unknown]
  - Illness [Recovered/Resolved]
  - Hypersensitivity [Recovered/Resolved]
  - Vomiting [Unknown]
